FAERS Safety Report 15930058 (Version 4)
Quarter: 2019Q4

REPORT INFORMATION
  Report Type: Report from Study
  Country: None (occurrence: US)
  Receive Date: 20190206
  Receipt Date: 20191219
  Transmission Date: 20200122
  Serious: Yes (Hospitalization)
  Sender: FDA-Public Use
  Company Number: US-ABBVIE-18K-163-2383414-00

PATIENT
  Sex: Female

DRUGS (3)
  1. ALEVE [Suspect]
     Active Substance: NAPROXEN SODIUM
     Indication: PRODUCT USED FOR UNKNOWN INDICATION
     Route: 065
  2. HUMIRA [Suspect]
     Active Substance: ADALIMUMAB
     Indication: RHEUMATOID ARTHRITIS
     Route: 058
  3. HUMIRA [Suspect]
     Active Substance: ADALIMUMAB
     Route: 058
     Dates: start: 2019

REACTIONS (23)
  - Haemorrhage [Unknown]
  - Wound dehiscence [Unknown]
  - Myalgia [Unknown]
  - Muscular weakness [Not Recovered/Not Resolved]
  - Rash [Not Recovered/Not Resolved]
  - Vitamin D abnormal [Unknown]
  - Limb injury [Recovered/Resolved]
  - Oedema peripheral [Unknown]
  - Helicobacter infection [Unknown]
  - Weight decreased [Unknown]
  - Hypoacusis [Not Recovered/Not Resolved]
  - Gait disturbance [Not Recovered/Not Resolved]
  - Joint stiffness [Unknown]
  - Dysphonia [Unknown]
  - Pollakiuria [Unknown]
  - Rheumatoid arthritis [Unknown]
  - Pruritus [Not Recovered/Not Resolved]
  - Stress [Unknown]
  - Sciatica [Unknown]
  - Neuralgia [Not Recovered/Not Resolved]
  - Peripheral swelling [Unknown]
  - Feeling cold [Unknown]
  - Drug ineffective [Not Recovered/Not Resolved]

NARRATIVE: CASE EVENT DATE: 2017
